FAERS Safety Report 26171197 (Version 2)
Quarter: 2025Q4

REPORT INFORMATION
  Report Type: Spontaneous
  Country: EU (occurrence: EU)
  Receive Date: 20251217
  Receipt Date: 20251217
  Transmission Date: 20260117
  Serious: Yes (Hospitalization)
  Sender: GUERBET
  Company Number: None

PATIENT
  Age: 84 Year
  Sex: Male
  Weight: 79 kg

DRUGS (4)
  1. OPTIRAY [Suspect]
     Active Substance: IOVERSOL
     Indication: Imaging procedure
     Route: 042
     Dates: start: 20251008, end: 20251008
  2. OPTIRAY [Suspect]
     Active Substance: IOVERSOL
     Route: 042
     Dates: start: 20251015, end: 20251015
  3. GASTROGRAFIN [Suspect]
     Active Substance: DIATRIZOATE MEGLUMINE\DIATRIZOATE SODIUM
     Indication: Imaging procedure
     Dosage: 1/2 AMPOULE
     Route: 048
     Dates: start: 20251016, end: 20251016
  4. Econazole Arrow 1% [Concomitant]
     Indication: Product used for unknown indication
     Route: 003
     Dates: start: 20251019, end: 20251020

REACTIONS (1)
  - Acute generalised exanthematous pustulosis [Recovering/Resolving]

NARRATIVE: CASE EVENT DATE: 20251019
